FAERS Safety Report 5263193-2 (Version None)
Quarter: 2007Q1

REPORT INFORMATION
  Report Type: 
  Country: None (occurrence: None)
  Receive Date: 20070312
  Receipt Date: 20070305
  Transmission Date: 20070707
  Serious: Yes (Other)
  Sender: FDA-Public Use
  Company Number: IL-PFIZER INC-2007017888

PATIENT
  Age: 66 Year
  Sex: Male

DRUGS (1)
  1. VIAGRA [Suspect]
     Indication: ERECTILE DYSFUNCTION
     Dosage: DAILY DOSE:100MG

REACTIONS (3)
  - ASTHENIA [None]
  - BLINDNESS TRANSIENT [None]
  - DIZZINESS [None]
